FAERS Safety Report 4855284-2 (Version None)
Quarter: 2005Q4

REPORT INFORMATION
  Report Type: 
  Country: None (occurrence: None)
  Receive Date: 20051125
  Receipt Date: 20050721
  Transmission Date: 20060501
  Serious: Yes (Hospitalization)
  Sender: FDA-Public Use
  Company Number: US-JNJFOC-20050704580

PATIENT
  Age: 54 Year
  Sex: Female
  Weight: 146 kg

DRUGS (3)
  1. LEVAQUIN [Suspect]
     Indication: URINARY TRACT INFECTION
     Dosage: 500 MG, ORAL
     Route: 048
     Dates: start: 20050101, end: 20050101
  2. GLYBURIDE [Concomitant]
  3. ACTOS [Concomitant]

REACTIONS (1)
  - HYPOGLYCAEMIA [None]
